FAERS Safety Report 17723794 (Version 1)
Quarter: 2020Q2

REPORT INFORMATION
  Report Type: Spontaneous
  Country: US (occurrence: US)
  Receive Date: 20200429
  Receipt Date: 20200429
  Transmission Date: 20200714
  Serious: No
  Sender: FDA-Public Use
  Company Number: US-PFIZER INC-2020088046

PATIENT
  Age: 75 Year
  Sex: Male
  Weight: 102 kg

DRUGS (3)
  1. KEYTRUDA [Concomitant]
     Active Substance: PEMBROLIZUMAB
     Indication: IMMUNE SYSTEM DISORDER
     Dosage: UNK, EVERY 3 WEEKS
     Route: 042
     Dates: start: 202002
  2. INLYTA [Suspect]
     Active Substance: AXITINIB
     Dosage: 5 MG, 2X/DAY
     Route: 048
     Dates: start: 20200319
  3. INLYTA [Suspect]
     Active Substance: AXITINIB
     Indication: RENAL CANCER
     Dosage: 120 MG, UNK

REACTIONS (3)
  - Product prescribing error [Unknown]
  - Neoplasm progression [Unknown]
  - Dysphonia [Unknown]
